FAERS Safety Report 8906225 (Version 4)
Quarter: 2013Q1

REPORT INFORMATION
  Report Type: Spontaneous
  Country: US (occurrence: None)
  Receive Date: 20121108
  Receipt Date: 20121211
  Transmission Date: 20140127
  Serious: Yes (Other)
  Sender: FDA-Public Use
  Company Number: 2012-7198

PATIENT
  Age: 14 Year
  Sex: Male
  Weight: 36.28 kg

DRUGS (2)
  1. INCRELEX [Suspect]
     Indication: FAILURE TO THRIVE
     Dosage: 209.48 UG/KG (104.74 UG/KG,2 IN 1 D),SUBCUTANEOUS
     Route: 058
     Dates: start: 20120801, end: 20121009
  2. INCRELEX [Suspect]
     Indication: OFF LABEL USE
     Dosage: 209.48 UG/KG (104.74 UG/KG,2 IN 1 D),SUBCUTANEOUS
     Route: 058
     Dates: start: 20120801, end: 20121009

REACTIONS (3)
  - Hand fracture [None]
  - Injection site haemorrhage [None]
  - Injection site pain [None]
